FAERS Safety Report 6045218-X (Version None)
Quarter: 2009Q1

REPORT INFORMATION
  Report Type: 
  Country: None (occurrence: None)
  Receive Date: 20090121
  Receipt Date: 20090109
  Transmission Date: 20090719
  Serious: Yes (Other)
  Sender: FDA-Public Use
  Company Number: FR-ROCHE-607714

PATIENT
  Sex: Male

DRUGS (3)
  1. SAQUINAVIR [Suspect]
     Indication: HIV INFECTION
     Dosage: FREQUENCY: 2 DOSES BID, DRUG: INVIRASE 500
     Route: 048
     Dates: start: 20070709, end: 20081128
  2. COMBIVIR [Concomitant]
     Indication: HIV INFECTION
     Route: 048
     Dates: start: 20070709, end: 20081128
  3. NORVIR [Concomitant]
     Indication: HIV INFECTION
     Route: 048

REACTIONS (1)
  - T-LYMPHOCYTE COUNT DECREASED [None]
